FAERS Safety Report 8718454 (Version 3)
Quarter: 2014Q1

REPORT INFORMATION
  Report Type: Report from Study
  Country: AU (occurrence: AU)
  Receive Date: 20120810
  Receipt Date: 20140320
  Transmission Date: 20141002
  Serious: Yes (Death)
  Sender: FDA-Public Use
  Company Number: AU-ROCHE-1098974

PATIENT
  Age: 90 Year
  Sex: Male

DRUGS (4)
  1. RANIBIZUMAB [Suspect]
     Indication: AGE-RELATED MACULAR DEGENERATION
     Route: 050
     Dates: start: 20090107
  2. RANIBIZUMAB [Suspect]
     Route: 050
     Dates: start: 20111108
  3. RANIBIZUMAB [Suspect]
     Route: 050
     Dates: start: 20120403
  4. ASPIRIN [Concomitant]

REACTIONS (2)
  - Myocardial infarction [Fatal]
  - Circulatory collapse [Fatal]
